FAERS Safety Report 17221924 (Version 3)
Quarter: 2021Q1

REPORT INFORMATION
  Report Type: Report from Study
  Country: FR (occurrence: FR)
  Receive Date: 20200101
  Receipt Date: 20210310
  Transmission Date: 20210419
  Serious: Yes (Hospitalization)
  Sender: FDA-Public Use
  Company Number: FR-ROCHE-2505251

PATIENT
  Age: 73 Year
  Sex: Female
  Weight: 77 kg

DRUGS (5)
  1. LEVOFLOXACINE [Concomitant]
     Active Substance: LEVOFLOXACIN
  2. DAPTOMYCIN. [Concomitant]
     Active Substance: DAPTOMYCIN
  3. AXEPIM [Concomitant]
     Active Substance: CEFEPIME HYDROCHLORIDE
  4. ATEZOLIZUMAB. [Suspect]
     Active Substance: ATEZOLIZUMAB
     Indication: SOFT TISSUE SARCOMA
     Route: 041
     Dates: start: 20190724, end: 20190814
  5. CEFAZOLINE [Concomitant]
     Active Substance: CEFAZOLIN SODIUM

REACTIONS (1)
  - Joint irrigation [Recovered/Resolved]

NARRATIVE: CASE EVENT DATE: 20191219
